FAERS Safety Report 4273278-5 (Version None)
Quarter: 2004Q1

REPORT INFORMATION
  Report Type: 
  Country: None (occurrence: None)
  Receive Date: 20040116
  Receipt Date: 20040107
  Transmission Date: 20041129
  Serious: Yes (Other)
  Sender: FDA-Public Use
  Company Number: WAES 0401GBR00046

PATIENT
  Age: 80 Year
  Sex: Male

DRUGS (7)
  1. ASPIRIN [Concomitant]
     Route: 048
  2. CALCIUM (UNSPECIFIED) [Concomitant]
  3. FOLIC ACID [Concomitant]
     Route: 048
  4. FUROSEMIDE [Concomitant]
  5. PHENOBARBITAL [Concomitant]
     Route: 048
  6. PHENYTOIN [Concomitant]
     Route: 048
  7. ZOCOR [Suspect]
     Indication: CEREBROVASCULAR ACCIDENT PROPHYLAXIS
     Route: 048
     Dates: end: 20031223

REACTIONS (3)
  - BLOOD CREATINE PHOSPHOKINASE INCREASED [None]
  - CEREBROVASCULAR ACCIDENT [None]
  - RENAL IMPAIRMENT [None]
